FAERS Safety Report 14114399 (Version 1)
Quarter: 2017Q4

REPORT INFORMATION
  Report Type: Spontaneous
  Country: US (occurrence: US)
  Receive Date: 20171023
  Receipt Date: 20171023
  Transmission Date: 20180321
  Serious: No
  Sender: FDA-Public Use
  Company Number: US-PFIZER INC-2017453255

PATIENT
  Age: 33 Year
  Sex: Female
  Weight: 74.84 kg

DRUGS (1)
  1. CHILDRENS ADVIL [Suspect]
     Active Substance: IBUPROFEN
     Dosage: PUT NOT EVEN A HALF A ML IN HER MOUTH
     Dates: start: 20171016, end: 20171016

REACTIONS (3)
  - Product taste abnormal [Unknown]
  - Intentional product misuse [Unknown]
  - Dysgeusia [Unknown]

NARRATIVE: CASE EVENT DATE: 20171016
